FAERS Safety Report 6010003-1 (Version None)
Quarter: 2008Q4

REPORT INFORMATION
  Report Type: 
  Country: None (occurrence: None)
  Receive Date: 20081218
  Receipt Date: 20081208
  Transmission Date: 20090506
  Serious: Yes (Hospitalization)
  Sender: FDA-Public Use
  Company Number: US-PFIZER INC-2008064079

PATIENT
  Sex: Male
  Weight: 50.794 kg

DRUGS (16)
  1. SILDENAFIL CITRATE [Suspect]
     Indication: IDIOPATHIC PULMONARY FIBROSIS
     Route: 048
     Dates: start: 20080320
  2. CELLCEPT [Concomitant]
     Indication: IDIOPATHIC PULMONARY FIBROSIS
     Dates: start: 20060101
  3. PREDNISONE TAB [Concomitant]
     Indication: IDIOPATHIC PULMONARY FIBROSIS
     Dates: start: 20050101
  4. ACETYLCYSTEINE [Concomitant]
     Indication: IDIOPATHIC PULMONARY FIBROSIS
  5. DRIXORAL [Concomitant]
     Indication: MUCOUS MEMBRANE DISORDER
     Dates: start: 20040101
  6. MUCINEX [Concomitant]
     Indication: MUCOUS MEMBRANE DISORDER
     Dates: start: 20070101
  7. IBUPROFEN [Concomitant]
     Indication: HEADACHE
     Dates: start: 20050101
  8. MYLANTA [Concomitant]
     Indication: ABDOMINAL DISCOMFORT
     Dates: start: 20040101
  9. MYLANTA [Concomitant]
     Indication: FLATULENCE
  10. MILK OF MAGNESIA [Concomitant]
     Indication: CONSTIPATION
     Dates: start: 20040101
  11. METAMUCIL-2 [Concomitant]
     Indication: CONSTIPATION
     Dates: start: 20040101
  12. MULTI-VITAMINS [Concomitant]
     Indication: MEDICAL DIET
     Dates: start: 19900101
  13. VITAMIN E [Concomitant]
     Indication: MEDICAL DIET
     Dates: start: 19900101
  14. CALCIUM [Concomitant]
     Indication: MEDICAL DIET
     Dates: start: 20050101
  15. SELENIUM [Concomitant]
     Indication: MEDICAL DIET
  16. INDOCIN [Concomitant]
     Indication: BACK PAIN
     Dates: start: 20070101

REACTIONS (1)
  - PNEUMONIA [None]
